FAERS Safety Report 8269234-2 (Version None)
Quarter: 2012Q2

REPORT INFORMATION
  Report Type: 
  Country: None (occurrence: None)
  Receive Date: 20120409
  Receipt Date: 20120403
  Transmission Date: 20120825
  Serious: Yes (Other)
  Sender: FDA-Public Use
  Company Number: US-PFIZER INC-2012071328

PATIENT
  Sex: Female
  Weight: 54.4 kg

DRUGS (4)
  1. PREMPRO [Suspect]
     Indication: NIGHT SWEATS
     Dosage: UNK, DAILY
  2. PREMPRO [Suspect]
     Indication: SLEEP DISORDER
  3. PREMARIN [Suspect]
     Indication: NIGHT SWEATS
     Dosage: UNK
  4. PREMARIN [Suspect]
     Indication: SLEEP DISORDER

REACTIONS (3)
  - NEUROPATHY PERIPHERAL [None]
  - LIMB DISCOMFORT [None]
  - DRUG INEFFECTIVE [None]
